FAERS Safety Report 9837862 (Version 2)
Quarter: 2014Q2

REPORT INFORMATION
  Report Type: Spontaneous
  Country: US (occurrence: None)
  Receive Date: 20131205
  Receipt Date: 20140416
  Transmission Date: 20141212
  Serious: Yes (Other)
  Sender: FDA-Public Use
  Company Number: 163-POMAL-13103903

PATIENT
  Age: 44 Year
  Sex: Male

DRUGS (2)
  1. POMALYST [Suspect]
     Indication: PLASMA CELL MYELOMA
     Route: 048
     Dates: start: 20130725
  2. CHEMOTHERAPY (CHEMOTHERAPEUTICS) [Concomitant]

REACTIONS (5)
  - Dysgeusia [None]
  - Pain [None]
  - Pyrexia [None]
  - Protein total increased [None]
  - Plasma cell myeloma [None]
